FAERS Safety Report 7916397-1 (Version None)
Quarter: 2011Q4

REPORT INFORMATION
  Report Type: 
  Country: None (occurrence: None)
  Receive Date: 20111116
  Receipt Date: 20111112
  Transmission Date: 20120403
  Serious: No
  Sender: FDA-Public Use
  Company Number: US-BIOGENIDEC-2011BI043466

PATIENT
  Age: 55 Year
  Sex: Male

DRUGS (2)
  1. AVONEX [Concomitant]
     Indication: MULTIPLE SCLEROSIS
     Route: 030
     Dates: start: 19990101
  2. TYSABRI [Suspect]
     Indication: MULTIPLE SCLEROSIS
     Route: 042
     Dates: start: 20070801

REACTIONS (4)
  - FALL [None]
  - HEMIPARESIS [None]
  - LOSS OF CONTROL OF LEGS [None]
  - SKELETAL INJURY [None]
